FAERS Safety Report 25026192 (Version 1)
Quarter: 2025Q1

REPORT INFORMATION
  Report Type: Spontaneous
  Country: FR (occurrence: FR)
  Receive Date: 20250301
  Receipt Date: 20250301
  Transmission Date: 20250409
  Serious: Yes (Other)
  Sender: AUROBINDO
  Company Number: FR-PFIZER INC-2018148454

PATIENT

DRUGS (1)
  1. IRINOTECAN [Suspect]
     Active Substance: IRINOTECAN
     Indication: Myelodysplastic syndrome
     Route: 042

REACTIONS (2)
  - Bronchopulmonary aspergillosis [Unknown]
  - Systemic candida [Unknown]
